FAERS Safety Report 7479540-7 (Version None)
Quarter: 2011Q2

REPORT INFORMATION
  Report Type: 
  Country: None (occurrence: None)
  Receive Date: 20110513
  Receipt Date: 20110511
  Transmission Date: 20111010
  Serious: Yes (Other)
  Sender: FDA-Public Use
  Company Number: FR-PFIZER INC-2011101632

PATIENT
  Age: 76 Year
  Sex: Female

DRUGS (3)
  1. EFFEXOR [Concomitant]
     Dosage: UNK
     Dates: start: 20080101
  2. LYSANXIA [Concomitant]
     Dosage: UNK
     Dates: start: 20080101
  3. AROMASIN [Suspect]
     Indication: BREAST CANCER
     Dosage: UNK
     Dates: start: 20110101, end: 20110506

REACTIONS (7)
  - FEELING COLD [None]
  - HEADACHE [None]
  - VERTIGO [None]
  - MICTURITION URGENCY [None]
  - ABDOMINAL PAIN LOWER [None]
  - PERIPHERAL COLDNESS [None]
  - NAUSEA [None]
